FAERS Safety Report 18827513 (Version 1)
Quarter: 2021Q1

REPORT INFORMATION
  Report Type: Spontaneous
  Country: US (occurrence: US)
  Receive Date: 20210201
  Receipt Date: 20210201
  Transmission Date: 20210419
  Serious: No
  Sender: FDA-Public Use
  Company Number: US-ABBVIE-20K-163-3468362-00

PATIENT
  Sex: Female

DRUGS (1)
  1. HUMIRA [Suspect]
     Active Substance: ADALIMUMAB
     Indication: PSORIASIS
     Route: 058

REACTIONS (9)
  - Wrong technique in product usage process [Unknown]
  - Swelling [Unknown]
  - Nausea [Unknown]
  - Incorrect dose administered [Unknown]
  - Haemorrhoids [Unknown]
  - Dysphagia [Unknown]
  - Dyspepsia [Unknown]
  - Groin pain [Unknown]
  - Joint range of motion decreased [Unknown]

NARRATIVE: CASE EVENT DATE: 20200629
